FAERS Safety Report 5222897-8 (Version None)
Quarter: 2007Q1

REPORT INFORMATION
  Report Type: 
  Country: None (occurrence: None)
  Receive Date: 20061208
  Receipt Date: 20060303
  Transmission Date: 20070707
  Serious: Yes (Other)
  Sender: FDA-Public Use
  Company Number: 2006033362

PATIENT
  Age: 53 Year
  Sex: Male
  Weight: 92.5338 kg

DRUGS (16)
  1. VIAGRA [Suspect]
     Indication: ERECTILE DYSFUNCTION
     Dates: start: 20010101
  2. VIOXX [Suspect]
     Indication: ILL-DEFINED DISORDER
  3. MOBIC [Suspect]
     Indication: ILL-DEFINED DISORDER
  4. REMICADE [Suspect]
     Indication: ILL-DEFINED DISORDER
  5. VICODIN [Concomitant]
  6. BACLOFEN [Concomitant]
  7. FLEXERIL [Concomitant]
  8. ZANTAC [Concomitant]
  9. CELEBREX [Concomitant]
  10. FUROSEMIDE [Concomitant]
  11. MULTI-VITAMINS [Concomitant]
  12. HUMIRA [Concomitant]
  13. ADVAIR (FLUTICASONE PROPIONATE, SALMETEROL XINAOFATE) [Concomitant]
  14. NASACORT [Concomitant]
  15. LIPITOR [Concomitant]
  16. ZETIA [Concomitant]

REACTIONS (7)
  - CONFUSIONAL STATE [None]
  - CYANOPSIA [None]
  - DIZZINESS [None]
  - FEELING HOT [None]
  - FLUSHING [None]
  - HEART RATE INCREASED [None]
  - MYOCARDIAL INFARCTION [None]
